FAERS Safety Report 21458977 (Version 1)
Quarter: 2022Q4

REPORT INFORMATION
  Report Type: Spontaneous
  Country: US (occurrence: None)
  Receive Date: 20221013
  Receipt Date: 20221013
  Transmission Date: 20230113
  Serious: Yes (unspecified)
  Sender: FDA-Public Use
  Company Number: None

PATIENT
  Age: 68 Year
  Sex: Female
  Weight: 77.11 kg

DRUGS (2)
  1. MULTIHANCE [Suspect]
     Active Substance: GADOBENATE DIMEGLUMINE
  2. LIPITOR [Concomitant]
     Active Substance: ATORVASTATIN CALCIUM

REACTIONS (7)
  - Venous injury [None]
  - Musculoskeletal disorder [None]
  - Injection site swelling [None]
  - Peripheral swelling [None]
  - Peripheral swelling [None]
  - Injection site pain [None]
  - Discomfort [None]

NARRATIVE: CASE EVENT DATE: 20220927
